FAERS Safety Report 24993695 (Version 1)
Quarter: 2025Q1

REPORT INFORMATION
  Report Type: Report from Study
  Country: IN (occurrence: IN)
  Receive Date: 20250221
  Receipt Date: 20250221
  Transmission Date: 20250409
  Serious: Yes (Other)
  Sender: ROCHE
  Company Number: IN-ROCHE-10000211458

PATIENT
  Age: 55 Year
  Sex: Female
  Weight: 152 kg

DRUGS (1)
  1. PHESGO [Suspect]
     Active Substance: HYALURONIDASE-ZZXF\PERTUZUMAB\TRASTUZUMAB
     Indication: Breast cancer metastatic
     Dosage: THERAPY WAS ONGOING
     Route: 058
     Dates: start: 20230616

REACTIONS (8)
  - Diarrhoea [Unknown]
  - Rash [Unknown]
  - Nausea [Unknown]
  - Cough [Unknown]
  - Disease progression [Unknown]
  - Productive cough [Recovered/Resolved]
  - Vomiting [Unknown]
  - Herpes virus infection [Recovered/Resolved]

NARRATIVE: CASE EVENT DATE: 20230707
